FAERS Safety Report 8950419 (Version 1)
Quarter: 2012Q4

REPORT INFORMATION
  Report Type: Report from Study
  Country: US (occurrence: US)
  Receive Date: 20121206
  Receipt Date: 20121206
  Transmission Date: 20130627
  Serious: Yes (Other)
  Sender: FDA-Public Use
  Company Number: US-ROCHE-1163862

PATIENT
  Sex: Female

DRUGS (1)
  1. OMALIZUMAB [Suspect]
     Indication: PRODUCT USED FOR UNKNOWN INDICATION
     Route: 065

REACTIONS (7)
  - Insomnia [Unknown]
  - Cough [Unknown]
  - Productive cough [Unknown]
  - Hypertension [Unknown]
  - Alopecia [Unknown]
  - Weight increased [Unknown]
  - Respiratory arrest [Unknown]
